FAERS Safety Report 8230217-X (Version None)
Quarter: 2012Q1

REPORT INFORMATION
  Report Type: 
  Country: None (occurrence: None)
  Receive Date: 20120321
  Receipt Date: 20120321
  Transmission Date: 20120608
  Serious: No
  Sender: FDA-Public Use
  Company Number: None

PATIENT
  Sex: Female
  Weight: 74.5 kg

DRUGS (9)
  1. XANAX [Concomitant]
  2. OXYCODONE HCL [Concomitant]
  3. COMPAZINE [Concomitant]
  4. FLEXERIL [Concomitant]
  5. VALTREX [Concomitant]
  6. PACLITAXEL [Suspect]
     Dosage: 180 MG
     Dates: end: 20120222
  7. NEULASTA [Suspect]
     Dates: end: 20120101
  8. ATIVAN [Concomitant]
  9. ZOFRAN [Concomitant]

REACTIONS (1)
  - NEUTROPENIA [None]
